FAERS Safety Report 8984016 (Version 1)
Quarter: 2012Q4

REPORT INFORMATION
  Report Type: Spontaneous
  Country: US (occurrence: None)
  Receive Date: 20121218
  Receipt Date: 20121218
  Transmission Date: 20130627
  Serious: Yes (Other)
  Sender: FDA-Public Use
  Company Number: None

PATIENT
  Age: 79 Year
  Sex: Female
  Weight: 52.16 kg

DRUGS (1)
  1. XARELTO [Suspect]
     Indication: HIP SURGERY
     Route: 048
     Dates: start: 20121001, end: 20121021

REACTIONS (9)
  - Hypoaesthesia [None]
  - Faeces discoloured [None]
  - Mucous stools [None]
  - Faeces discoloured [None]
  - Heart rate increased [None]
  - Palpitations [None]
  - Epistaxis [None]
  - Ear haemorrhage [None]
  - Haematemesis [None]
